FAERS Safety Report 13520938 (Version 1)
Quarter: 2017Q2

REPORT INFORMATION
  Report Type: Spontaneous
  Country: US (occurrence: US)
  Receive Date: 20170505
  Receipt Date: 20170505
  Transmission Date: 20170830
  Serious: Yes (Disabling)
  Sender: FDA-Public Use
  Company Number: None

PATIENT
  Age: 42 Year
  Sex: Female
  Weight: 57 kg

DRUGS (2)
  1. ABILIFY [Suspect]
     Active Substance: ARIPIPRAZOLE
     Indication: FEAR
     Route: 048
     Dates: start: 20140607, end: 20150815
  2. KEISHIKASYAKUYAKUTOH [Concomitant]

REACTIONS (17)
  - Aggression [None]
  - Mouth injury [None]
  - Depression [None]
  - Loss of personal independence in daily activities [None]
  - Disturbance in attention [None]
  - Gait disturbance [None]
  - Irritability [None]
  - Stress [None]
  - Fatigue [None]
  - Leiomyoma [None]
  - Discomfort [None]
  - Muscle disorder [None]
  - Seizure [None]
  - Pyrexia [None]
  - Wound [None]
  - Pain [None]
  - Feeling abnormal [None]

NARRATIVE: CASE EVENT DATE: 20140610
